FAERS Safety Report 4509073-9 (Version None)
Quarter: 2004Q4

REPORT INFORMATION
  Report Type: 
  Country: None (occurrence: None)
  Receive Date: 20041025
  Receipt Date: 20040723
  Transmission Date: 20050328
  Serious: Yes (Other)
  Sender: FDA-Public Use
  Company Number: US-JNJFOC-20040706471

PATIENT
  Age: 54 Year
  Sex: Female

DRUGS (13)
  1. INFLIXIMAB (INFLIXIMAB, RECOMBINANT) LYOPHILIZED POWDER [Suspect]
     Indication: RHEUMATOID ARTHRITIS
     Dosage: 3-7MG/KG
     Dates: start: 20010608, end: 20030108
  2. QUINACRINE (MEPACRINE HYDROCHLORIDE) [Concomitant]
  3. METHOTREXATE [Concomitant]
  4. ARAVA [Concomitant]
  5. PROZAC (FLUOXETINE HYDROCHLORIDE) TABLETS [Concomitant]
  6. FOLIC ACID [Concomitant]
  7. ATENOLOL [Concomitant]
  8. LIPITOR [Concomitant]
  9. PREMARIN [Concomitant]
  10. DYAZIDE [Concomitant]
  11. SYNTHROID [Concomitant]
  12. BEXTRA [Concomitant]
  13. ASPIRIN [Concomitant]

REACTIONS (1)
  - SYSTEMIC LUPUS ERYTHEMATOSUS [None]
